FAERS Safety Report 7368609-3 (Version None)
Quarter: 2011Q1

REPORT INFORMATION
  Report Type: 
  Country: None (occurrence: None)
  Receive Date: 20110310
  Receipt Date: 20110302
  Transmission Date: 20110831
  Serious: Yes (Other)
  Sender: FDA-Public Use
  Company Number: 2011SP006504

PATIENT
  Age: 77 Year
  Sex: Male

DRUGS (3)
  1. ASPIRIN [Concomitant]
  2. LORATADINE [Suspect]
     Indication: ANTIPLATELET THERAPY
     Dosage: 10 MG;QD
  3. CLOPIDOGREL BISULFATE [Suspect]
     Indication: ANTIPLATELET THERAPY
     Dosage: 75 MG; QD

REACTIONS (1)
  - THROMBOSIS IN DEVICE [None]
